FAERS Safety Report 5165942-0 (Version None)
Quarter: 2006Q4

REPORT INFORMATION
  Report Type: 
  Country: None (occurrence: None)
  Receive Date: 20061206
  Receipt Date: 20020102
  Transmission Date: 20070319
  Serious: Yes (Hospitalization)
  Sender: FDA-Public Use
  Company Number: FR-BOEHRINGER INGELHEIM PHARMACEUTICALS, INC.-2002-FF-00007FF

PATIENT
  Sex: Female

DRUGS (4)
  1. VIRAMUNE [Suspect]
     Indication: HIV INFECTION
     Route: 064
  2. VIDEX [Suspect]
     Indication: HIV INFECTION
     Route: 064
  3. VIRACEPT [Suspect]
     Indication: HIV INFECTION
     Route: 064
  4. RETROVIR [Suspect]
     Indication: PROPHYLAXIS AGAINST HIV INFECTION
     Route: 048
     Dates: start: 19990604, end: 19990728

REACTIONS (1)
  - BLOOD LACTIC ACID INCREASED [None]
